FAERS Safety Report 6335107-5 (Version None)
Quarter: 2009Q3

REPORT INFORMATION
  Report Type: 
  Country: None (occurrence: None)
  Receive Date: 20090828
  Receipt Date: 20090828
  Transmission Date: 20100115
  Serious: No
  Sender: FDA-Public Use
  Company Number: None

PATIENT
  Age: 64 Year
  Sex: Female
  Weight: 72.5755 kg

DRUGS (2)
  1. EFFEXOR XR [Suspect]
     Indication: DEPRESSION
     Dosage: 75 MG DAILY PO
     Route: 048
     Dates: start: 20090225
  2. EFFEXOR XR [Suspect]
     Indication: DEPRESSION
     Dosage: 75 MG DAILY PO
     Route: 048
     Dates: start: 20090521

REACTIONS (5)
  - HEPATITIS ACUTE [None]
  - JAUNDICE [None]
  - NAUSEA [None]
  - PRURITUS [None]
  - VOMITING [None]
